FAERS Safety Report 12981537 (Version 2)
Quarter: 2016Q4

REPORT INFORMATION
  Report Type: Spontaneous
  Country: FI (occurrence: FI)
  Receive Date: 20161129
  Receipt Date: 20161212
  Transmission Date: 20170207
  Serious: Yes (Other)
  Sender: FDA-Public Use
  Company Number: FI-ROCHE-1860253

PATIENT
  Age: 25 Year
  Sex: Female

DRUGS (17)
  1. XOLAIR [Suspect]
     Active Substance: OMALIZUMAB
     Dosage: 150 MG,UNK
     Route: 065
     Dates: start: 20161123, end: 20161123
  2. OMEPRAZOLE. [Concomitant]
     Active Substance: OMEPRAZOLE
     Indication: PRODUCT USED FOR UNKNOWN INDICATION
     Dosage: UNK
     Route: 065
  3. PREGABALIN. [Concomitant]
     Active Substance: PREGABALIN
     Indication: PRODUCT USED FOR UNKNOWN INDICATION
     Dosage: UNK
     Route: 065
  4. HYDROXYZINE [Concomitant]
     Active Substance: HYDROXYZINE\HYDROXYZINE HYDROCHLORIDE
     Indication: PRODUCT USED FOR UNKNOWN INDICATION
     Dosage: UNK
     Route: 065
     Dates: start: 20160623
  5. XOLAIR [Suspect]
     Active Substance: OMALIZUMAB
     Dosage: 30 MG, UNK (SECOND INJECTION)
     Route: 065
     Dates: start: 20161114, end: 20161114
  6. MONTELUKAST [Concomitant]
     Active Substance: MONTELUKAST SODIUM
     Indication: PRODUCT USED FOR UNKNOWN INDICATION
     Dosage: (ONCE A DAY IN THE EVENING) START DATE WAS REPORTED AS 28 JUN 2016 AND LATER IN THE TEXT AS 23 JUN 2
     Route: 065
     Dates: start: 201606
  7. VENLAFAXINE [Concomitant]
     Active Substance: VENLAFAXINE HYDROCHLORIDE
     Indication: PRODUCT USED FOR UNKNOWN INDICATION
     Dosage: UNK
     Route: 065
  8. XOLAIR [Suspect]
     Active Substance: OMALIZUMAB
     Indication: IDIOPATHIC URTICARIA
     Dosage: (150 MG IN RIGHT UPPER ARM, AND 150 MG IN LEFT UPPER ARM)
     Route: 058
     Dates: start: 20160706
  9. XOLAIR [Suspect]
     Active Substance: OMALIZUMAB
     Dosage: 150 MG,UNK
     Route: 065
     Dates: start: 20161121, end: 20161121
  10. LEVOCETIRIZINA [Concomitant]
     Active Substance: LEVOCETIRIZINE
     Indication: PRODUCT USED FOR UNKNOWN INDICATION
     Dosage: UNK
     Route: 065
     Dates: start: 20160623
  11. DESLORATADINE. [Concomitant]
     Active Substance: DESLORATADINE
     Indication: PRODUCT USED FOR UNKNOWN INDICATION
     Dosage: UNK
     Route: 065
  12. XOLAIR [Suspect]
     Active Substance: OMALIZUMAB
     Dosage: (46 WEEKS/2016)
     Route: 058
     Dates: start: 201611
  13. STELLA [Concomitant]
     Indication: PRODUCT USED FOR UNKNOWN INDICATION
     Dosage: UNK
     Route: 065
     Dates: start: 20160623
  14. MERCILON [Concomitant]
     Active Substance: DESOGESTREL\ETHINYL ESTRADIOL
     Indication: PRODUCT USED FOR UNKNOWN INDICATION
     Dosage: UNK
     Route: 065
  15. OXYNORM [Concomitant]
     Active Substance: OXYCODONE HYDROCHLORIDE
     Indication: PRODUCT USED FOR UNKNOWN INDICATION
     Dosage: WHEN NEEDED PRN
     Route: 065
  16. TARGINIQ ER [Concomitant]
     Active Substance: NALOXONE HYDROCHLORIDE\OXYCODONE HYDROCHLORIDE
     Indication: PRODUCT USED FOR UNKNOWN INDICATION
     Dosage: PRN (WHEN NEEDED)
     Route: 065
  17. XOLAIR [Suspect]
     Active Substance: OMALIZUMAB
     Dosage: 100 MG, UNK (THIRD INJECTION)
     Route: 065
     Dates: start: 20161116, end: 20161116

REACTIONS (22)
  - Pain of skin [Recovered/Resolved]
  - Neutrophilia [Unknown]
  - Arthralgia [Recovered/Resolved]
  - White blood cell count increased [Unknown]
  - Myalgia [Recovered/Resolved]
  - Toothache [Recovered/Resolved]
  - Viral test positive [Unknown]
  - Swelling [Recovered/Resolved]
  - Erythema [Recovered/Resolved]
  - Peripheral swelling [Recovered/Resolved]
  - Abasia [Recovered/Resolved]
  - Musculoskeletal stiffness [Recovered/Resolved]
  - Contusion [Recovered/Resolved]
  - Lymphadenopathy [Unknown]
  - Heart rate increased [Unknown]
  - Urticaria [Recovered/Resolved]
  - Serum sickness [Recovering/Resolving]
  - Joint stiffness [Recovered/Resolved]
  - Urticarial vasculitis [Recovered/Resolved]
  - C-reactive protein increased [Recovering/Resolving]
  - Nasopharyngitis [Recovering/Resolving]
  - Upper respiratory tract infection [Unknown]

NARRATIVE: CASE EVENT DATE: 20160712
